FAERS Safety Report 4847202-8 (Version None)
Quarter: 2005Q4

REPORT INFORMATION
  Report Type: 
  Country: None (occurrence: None)
  Receive Date: 20051207
  Receipt Date: 20050718
  Transmission Date: 20060501
  Serious: Yes (Hospitalization, Other)
  Sender: FDA-Public Use
  Company Number: US-MERCK-0507USA02844

PATIENT
  Age: 64 Year
  Sex: Male
  Weight: 100 kg

DRUGS (1)
  1. VIOXX [Suspect]
     Indication: ARTHRITIS
     Route: 048
     Dates: start: 19991201, end: 20010601

REACTIONS (6)
  - ACUTE MYOCARDIAL INFARCTION [None]
  - BLINDNESS TRANSIENT [None]
  - CHEST PAIN [None]
  - CONFUSIONAL STATE [None]
  - HAEMORRHAGIC STROKE [None]
  - SHOULDER PAIN [None]
